FAERS Safety Report 7400777-7 (Version None)
Quarter: 2011Q2

REPORT INFORMATION
  Report Type: 
  Country: None (occurrence: None)
  Receive Date: 20110407
  Receipt Date: 20110331
  Transmission Date: 20111010
  Serious: Yes (Death, Life-Threatening, Hospitalization)
  Sender: FDA-Public Use
  Company Number: B0704657A

PATIENT
  Sex: Male
  Weight: 55 kg

DRUGS (16)
  1. CYCLOSPORINE [Concomitant]
     Indication: IMMUNOSUPPRESSION
     Dosage: 350MG PER DAY
     Route: 065
     Dates: start: 20050119, end: 20050222
  2. KOLANTYL [Concomitant]
     Dosage: 1G PER DAY
     Route: 048
     Dates: start: 20050117, end: 20050204
  3. ALKERAN [Suspect]
     Indication: STEM CELL TRANSPLANT
     Dosage: 75MGM2 PER DAY
     Route: 042
     Dates: start: 20050117, end: 20050117
  4. FLUDARA [Suspect]
     Indication: STEM CELL TRANSPLANT
     Dosage: 30MGM2 PER DAY
     Route: 042
     Dates: start: 20050113, end: 20050118
  5. TAKEPRON [Concomitant]
     Dosage: 30MG PER DAY
     Route: 048
     Dates: start: 20050107, end: 20050204
  6. DIFLUCAN [Concomitant]
     Dosage: 400MG PER DAY
     Route: 048
     Dates: start: 20050113, end: 20050129
  7. METHOTREXATE [Concomitant]
     Indication: IMMUNOSUPPRESSION
     Dosage: 17MG PER DAY
     Route: 065
     Dates: start: 20050121, end: 20050126
  8. URSO 250 [Concomitant]
     Dosage: 300MG PER DAY
     Route: 048
     Dates: start: 20050113, end: 20050210
  9. LOXONIN [Concomitant]
     Dosage: 60MG PER DAY
     Route: 048
     Dates: start: 20050117, end: 20050204
  10. LAMIVUDINE(PEPFAR) [Concomitant]
     Dosage: 100MG PER DAY
     Route: 048
     Dates: start: 20050107, end: 20050311
  11. GASLON N [Concomitant]
     Dosage: 4MG PER DAY
     Route: 048
     Dates: start: 20050107, end: 20050228
  12. ZOVIRAX [Concomitant]
     Dosage: 1000MG PER DAY
     Route: 048
     Dates: start: 20050113, end: 20050129
  13. GRAN [Concomitant]
     Dosage: 525MCG PER DAY
     Dates: start: 20050125, end: 20050206
  14. CRAVIT [Concomitant]
     Dosage: 600MG PER DAY
     Route: 048
     Dates: start: 20050113, end: 20050129
  15. ISONIAZID [Concomitant]
     Dosage: 300MG PER DAY
     Route: 048
     Dates: start: 20050113, end: 20050131
  16. HACHIAZULE [Concomitant]
     Dosage: 6G PER DAY
     Route: 002
     Dates: start: 20050107, end: 20050314

REACTIONS (11)
  - ENTEROCOCCAL SEPSIS [None]
  - URETERIC OBSTRUCTION [None]
  - BLOOD BILIRUBIN INCREASED [None]
  - BLOOD CREATININE INCREASED [None]
  - ASPARTATE AMINOTRANSFERASE INCREASED [None]
  - PNEUMONIA [None]
  - ALANINE AMINOTRANSFERASE INCREASED [None]
  - BLOOD POTASSIUM DECREASED [None]
  - BLOOD POTASSIUM INCREASED [None]
  - RENAL IMPAIRMENT [None]
  - BLOOD UREA INCREASED [None]
